FAERS Safety Report 5620340-8 (Version None)
Quarter: 2008Q1

REPORT INFORMATION
  Report Type: 
  Country: None (occurrence: None)
  Receive Date: 20080208
  Receipt Date: 20080128
  Transmission Date: 20080703
  Serious: Yes (Life-Threatening)
  Sender: FDA-Public Use
  Company Number: BR-ELI_LILLY_AND_COMPANY-BR200801006131

PATIENT
  Sex: Female

DRUGS (1)
  1. GEMZAR [Suspect]
     Indication: NEOPLASM
     Dosage: 1000 MG/M2, OTHER
     Route: 042
     Dates: start: 20080121

REACTIONS (4)
  - FEELING ABNORMAL [None]
  - PRURITUS [None]
  - PYREXIA [None]
  - RASH [None]
